FAERS Safety Report 5845726-8 (Version None)
Quarter: 2008Q3

REPORT INFORMATION
  Report Type: 
  Country: None (occurrence: None)
  Receive Date: 20080814
  Receipt Date: 20080807
  Transmission Date: 20090109
  Serious: Yes (Disabling)
  Sender: FDA-Public Use
  Company Number: PHBS2008NL05360

PATIENT
  Age: 11 Year
  Sex: Female
  Weight: 27 kg

DRUGS (3)
  1. BACLOFEN [Suspect]
     Indication: CEREBRAL PALSY
     Dosage: 50 UG/DAY
     Route: 037
  2. BACLOFEN [Suspect]
     Indication: MUSCLE SPASTICITY
     Dosage: 97 UG/DAY
     Route: 037
  3. BACLOFEN [Suspect]
     Dosage: 136 UG/DAY
     Route: 037

REACTIONS (4)
  - DECUBITUS ULCER [None]
  - DROOLING [None]
  - HYPOTONIA [None]
  - LETHARGY [None]
